FAERS Safety Report 5698618-1 (Version None)
Quarter: 2008Q2

REPORT INFORMATION
  Report Type: 
  Country: None (occurrence: None)
  Receive Date: 20080408
  Receipt Date: 20061102
  Transmission Date: 20081010
  Serious: No
  Sender: FDA-Public Use
  Company Number: US-BAYER-US-2006-034813

PATIENT
  Sex: Female

DRUGS (8)
  1. CLIMARA PRO [Suspect]
     Route: 062
  2. CLIMARA [Suspect]
     Route: 062
  3. PROPRANOLOL [Concomitant]
     Dosage: UNIT DOSE: 20 MG
  4. REGLAN [Concomitant]
  5. LIQUIBID-D [Concomitant]
  6. ZYRTEC [Concomitant]
  7. ZOCOR [Concomitant]
  8. INDOCIN [Concomitant]
     Dosage: UNIT DOSE: 25 MG

REACTIONS (4)
  - ABDOMINAL PAIN UPPER [None]
  - BODY TEMPERATURE INCREASED [None]
  - METRORRHAGIA [None]
  - NAUSEA [None]
